FAERS Safety Report 25644177 (Version 1)
Quarter: 2025Q3

REPORT INFORMATION
  Report Type: Spontaneous
  Country: EU (occurrence: EU)
  Receive Date: 20250805
  Receipt Date: 20250805
  Transmission Date: 20251021
  Serious: Yes (Other)
  Sender: GLAND PHARMA LTD
  Company Number: EU-GLANDPHARMA-IT-2025GLNLIT01653

PATIENT
  Age: 56 Year
  Sex: Male

DRUGS (1)
  1. FLUOROURACIL [Suspect]
     Active Substance: FLUOROURACIL
     Indication: Rectal cancer
     Route: 065

REACTIONS (3)
  - Acute coronary syndrome [Unknown]
  - Cardiotoxicity [Unknown]
  - Vasospasm [Unknown]
